FAERS Safety Report 5088133-0 (Version None)
Quarter: 2006Q3

REPORT INFORMATION
  Report Type: 
  Country: None (occurrence: None)
  Receive Date: 20060727
  Receipt Date: 20060427
  Transmission Date: 20061208
  Serious: Yes (Other)
  Sender: FDA-Public Use
  Company Number: 2005158373

PATIENT
  Age: 79 Year
  Sex: Female
  Weight: 61.2356 kg

DRUGS (7)
  1. LYRICA [Suspect]
     Indication: POST HERPETIC NEURALGIA
     Dosage: 150 MG (75 MG,2 IN 1 D)
     Dates: start: 20050917, end: 20050901
  2. CAPTOPRIL [Concomitant]
  3. HYDROCHLOROTHIAZIDE [Concomitant]
  4. LEVOXYL [Concomitant]
  5. GINKO BILOBA (GINKGO BILOBA) [Concomitant]
  6. MULTIVITAMIN [Concomitant]
  7. NIACIN [Concomitant]

REACTIONS (2)
  - NEURALGIA [None]
  - STUPOR [None]
